FAERS Safety Report 7491589-7 (Version None)
Quarter: 2011Q2

REPORT INFORMATION
  Report Type: 
  Country: None (occurrence: None)
  Receive Date: 20110519
  Receipt Date: 20110509
  Transmission Date: 20111010
  Serious: Yes (Other)
  Sender: FDA-Public Use
  Company Number: DE-NOVOPROD-328108

PATIENT
  Age: 90 Year
  Sex: Male

DRUGS (2)
  1. NOVOSEVEN [Suspect]
     Indication: HAEMORRHAGE
  2. TRANEXAMIC ACID [Suspect]
     Indication: PROCOAGULANT THERAPY
     Dosage: 100 MG/KG, SINGLE
     Route: 042

REACTIONS (1)
  - CONVULSION [None]
